FAERS Safety Report 18482466 (Version 1)
Quarter: 2020Q4

REPORT INFORMATION
  Report Type: Spontaneous
  Country: US (occurrence: US)
  Receive Date: 20201109
  Receipt Date: 20201109
  Transmission Date: 20210114
  Serious: No
  Sender: FDA-Public Use
  Company Number: US-ALLERGAN-2020787US

PATIENT
  Age: 40 Year
  Sex: Female

DRUGS (2)
  1. LO LOESTRIN FE [Suspect]
     Active Substance: ETHINYL ESTRADIOL\NORETHINDRONE ACETATE
     Indication: OESTROGEN THERAPY
     Dosage: UNK, QD
     Route: 048
     Dates: start: 20190519, end: 202001
  2. LO LOESTRIN FE [Suspect]
     Active Substance: ETHINYL ESTRADIOL\NORETHINDRONE ACETATE
     Indication: MENSTRUAL DISORDER

REACTIONS (8)
  - Dizziness [Recovered/Resolved]
  - Off label use [Unknown]
  - Panic disorder [Recovering/Resolving]
  - Cardiac disorder [Recovered/Resolved]
  - Anxiety [Recovering/Resolving]
  - Visual impairment [Not Recovered/Not Resolved]
  - Metrorrhagia [Recovered/Resolved]
  - Aggression [Recovered/Resolved]

NARRATIVE: CASE EVENT DATE: 20190519
